FAERS Safety Report 17494243 (Version 1)
Quarter: 2020Q1

REPORT INFORMATION
  Report Type: Spontaneous
  Country: US (occurrence: US)
  Receive Date: 20200303
  Receipt Date: 20200303
  Transmission Date: 20200409
  Serious: No
  Sender: FDA-Public Use
  Company Number: US-AMNEAL PHARMACEUTICALS-2019-IPXL-01620

PATIENT
  Age: 80 Year
  Sex: Female
  Weight: 44 kg

DRUGS (4)
  1. CARBIDOPA AND LEVODOPA [Concomitant]
     Active Substance: CARBIDOPA\LEVODOPA
     Indication: PRODUCT USED FOR UNKNOWN INDICATION
     Dosage: 2 TABLETS, TID
     Route: 048
  2. AMLODIPINE [AMLODIPINE BESILATE] [Concomitant]
     Active Substance: AMLODIPINE BESYLATE
     Indication: PALPITATIONS
     Dosage: 5 MILLIGRAM, 1 /DAY
     Route: 065
  3. LEVOTHYROXINE [LEVOTHYROXINE SODIUM] [Concomitant]
     Active Substance: LEVOTHYROXINE SODIUM
     Indication: THYROID DISORDER
     Dosage: 25 MICROGRAM, 1 /DAY
     Route: 065
  4. RYTARY [Suspect]
     Active Substance: CARBIDOPA\LEVODOPA
     Indication: PARKINSON^S DISEASE
     Dosage: 2 DOSAGE FORM, 3 /DAY
     Route: 048
     Dates: start: 20190627, end: 201907

REACTIONS (5)
  - Malaise [Recovered/Resolved]
  - Nausea [Recovered/Resolved]
  - Loss of personal independence in daily activities [Recovered/Resolved]
  - Vomiting [Recovered/Resolved]
  - Ill-defined disorder [Recovered/Resolved]

NARRATIVE: CASE EVENT DATE: 201906
